FAERS Safety Report 11680561 (Version 3)
Quarter: 2015Q4

REPORT INFORMATION
  Report Type: Spontaneous
  Country: US (occurrence: US)
  Receive Date: 20151027
  Receipt Date: 20151110
  Transmission Date: 20160304
  Serious: No
  Sender: FDA-Public Use
  Company Number: US-ELI_LILLY_AND_COMPANY-US201009005012

PATIENT
  Age: 82 Year
  Sex: Female

DRUGS (13)
  1. MULTIVITAMIN [Concomitant]
     Active Substance: VITAMINS
  2. LIPITOR [Concomitant]
     Active Substance: ATORVASTATIN CALCIUM
     Route: 065
  3. FORTEO [Suspect]
     Active Substance: TERIPARATIDE
     Indication: OSTEOPOROSIS
     Dosage: 20 UG, DAILY (1/D)
     Dates: start: 20100730
  4. FORTEO [Suspect]
     Active Substance: TERIPARATIDE
     Dosage: 20 UG, DAILY (1/D)
  5. FORTEO [Suspect]
     Active Substance: TERIPARATIDE
     Dosage: 20 UG, QD
     Route: 065
  6. AVAPRO [Concomitant]
     Active Substance: IRBESARTAN
     Route: 065
  7. ACTOS [Concomitant]
     Active Substance: PIOGLITAZONE HYDROCHLORIDE
     Route: 065
  8. FORTEO [Suspect]
     Active Substance: TERIPARATIDE
     Dosage: 20 UG, QD
  9. DIGOXIN. [Concomitant]
     Active Substance: DIGOXIN
     Route: 065
  10. FORTEO [Suspect]
     Active Substance: TERIPARATIDE
     Dosage: 20 UG, DAILY (1/D)
  11. FORTEO [Suspect]
     Active Substance: TERIPARATIDE
     Dosage: 20 UG, QD
  12. EVISTA [Concomitant]
     Active Substance: RALOXIFENE HYDROCHLORIDE
     Route: 065
  13. CALCIUM [Concomitant]
     Active Substance: CALCIUM

REACTIONS (18)
  - Cyst [Unknown]
  - Headache [Recovered/Resolved]
  - Injection site pain [Not Recovered/Not Resolved]
  - Biopsy breast [Unknown]
  - Head banging [Unknown]
  - Blood calcium increased [Not Recovered/Not Resolved]
  - Contusion [Unknown]
  - Injection site haemorrhage [Unknown]
  - Dizziness [Not Recovered/Not Resolved]
  - Renal cyst [Unknown]
  - Blood cholesterol abnormal [Unknown]
  - Malaise [Unknown]
  - Influenza [Unknown]
  - Weight decreased [Unknown]
  - Injection site bruising [Not Recovered/Not Resolved]
  - Drug dose omission [Unknown]
  - Headache [Not Recovered/Not Resolved]
  - Headache [Recovering/Resolving]

NARRATIVE: CASE EVENT DATE: 20100730
